FAERS Safety Report 5240252-1 (Version None)
Quarter: 2007Q1

REPORT INFORMATION
  Report Type: 
  Country: None (occurrence: None)
  Receive Date: 20061208
  Receipt Date: 20060515
  Transmission Date: 20070707
  Serious: Yes (Other)
  Sender: FDA-Public Use
  Company Number: 2006UW09377

PATIENT
  Age: 46 Year
  Sex: Female

DRUGS (2)
  1. CRESTOR [Suspect]
     Indication: BLOOD CHOLESTEROL INCREASED
     Dosage: 5 MG DAILY PO
     Route: 048
     Dates: start: 20051201, end: 20060219
  2. NICOTROL [Suspect]
     Indication: SMOKING CESSATION THERAPY
     Dosage: 2 12 3 CARTRIDGE 3-4 TIMES DAILY
     Dates: start: 20051201, end: 20060101

REACTIONS (2)
  - MOUTH CYST [None]
  - STOMATITIS [None]
